FAERS Safety Report 9049665 (Version 1)
Quarter: 2013Q1

REPORT INFORMATION
  Report Type: Spontaneous
  Country: AU (occurrence: AU)
  Receive Date: 20130205
  Receipt Date: 20130205
  Transmission Date: 20140127
  Serious: Yes (Death)
  Sender: FDA-Public Use
  Company Number: AU-B.I. PHARMACEUTICALS,INC./RIDGEFIELD-2013-AU-00069AU

PATIENT
  Sex: Female

DRUGS (5)
  1. PRADAXA [Suspect]
     Indication: CEREBROVASCULAR ACCIDENT PROPHYLAXIS
     Dates: start: 20110818
  2. PRADAXA [Suspect]
     Indication: ATRIAL FIBRILLATION
  3. LASIX [Concomitant]
  4. METFORMIN [Concomitant]
     Indication: DIABETES MELLITUS
  5. RISPERIDONE [Concomitant]
     Indication: DEMENTIA

REACTIONS (1)
  - Dementia [Fatal]
